FAERS Safety Report 20431526 (Version 1)
Quarter: 2022Q1

REPORT INFORMATION
  Report Type: Spontaneous
  Country: CN (occurrence: None)
  Receive Date: 20220204
  Receipt Date: 20220204
  Transmission Date: 20220423
  Serious: Yes (Other)
  Sender: FDA-Public Use
  Company Number: 2022A054252

PATIENT
  Age: 19595 Day
  Sex: Male
  Weight: 51 kg

DRUGS (22)
  1. DAPAGLIFLOZIN [Suspect]
     Active Substance: DAPAGLIFLOZIN
     Indication: Diabetes mellitus
     Route: 048
     Dates: start: 20220101, end: 20220114
  2. DAPAGLIFLOZIN [Suspect]
     Active Substance: DAPAGLIFLOZIN
     Indication: Diabetes mellitus
     Dosage: CONTINUED TO ORALLY TAKE DAPAGLIFLOZIN 10 MG DAILY AFTER DISCHARGE
     Route: 048
  3. INSULIN ASPART [Concomitant]
     Active Substance: INSULIN ASPART
     Indication: Diabetes mellitus
     Route: 058
     Dates: start: 20220110, end: 20220110
  4. INSULIN ASPART [Concomitant]
     Active Substance: INSULIN ASPART
     Indication: Diabetes mellitus
     Route: 058
     Dates: start: 20220111, end: 20220125
  5. CLOPIDOGREL BISULFATE [Concomitant]
     Active Substance: CLOPIDOGREL BISULFATE
     Indication: Thrombosis
     Dosage: ONCE EVERY DAY
     Route: 048
     Dates: start: 20220110, end: 20220125
  6. ATORVASTATIN CALCIUM [Concomitant]
     Active Substance: ATORVASTATIN CALCIUM
     Indication: Arteriosclerosis
     Dosage: ONCE EVERY DAY
     Route: 048
     Dates: start: 20220110, end: 20220125
  7. LEVEMIR [Concomitant]
     Active Substance: INSULIN DETEMIR
     Dosage: 16U QD
     Route: 058
  8. LIRAGLUTIDE [Concomitant]
     Active Substance: LIRAGLUTIDE
     Dosage: 0.6 MG QD
     Route: 058
  9. ACARBOSE [Concomitant]
     Active Substance: ACARBOSE
     Dosage: 0.1G TID, CHEWING DURING MEALS
     Route: 048
  10. REPAGLINIDE [Concomitant]
     Active Substance: REPAGLINIDE
     Dosage: 2 MG TID
     Route: 048
  11. METFORMIN HYDROCHLORIDE [Concomitant]
     Active Substance: METFORMIN HYDROCHLORIDE
     Dosage: 0.5G TID, ORAL ADMINISTRATION AFTER MEALS
     Route: 048
  12. NOVORAPID [Concomitant]
     Active Substance: INSULIN ASPART
     Dosage: 10 UNITS IH TID-1 DAY
     Route: 065
     Dates: start: 20220110
  13. NOVORAPID [Concomitant]
     Active Substance: INSULIN ASPART
     Dosage: 14 UNITS IH TID
     Route: 065
     Dates: start: 20220111
  14. ASPIRIN [Concomitant]
     Active Substance: ASPIRIN
     Indication: Platelet aggregation abnormal
     Dosage: 100 MG QN
     Route: 065
  15. ARGATROBAN [Concomitant]
     Active Substance: ARGATROBAN
     Indication: Disseminated intravascular coagulation
     Dosage: NS 28ML + ARGATROBAN 10 MG] IVVP BID
     Route: 065
     Dates: start: 20220114
  16. URINARY KALLIDINOGENASE [Concomitant]
     Indication: Blood glucose abnormal
     Dosage: [NS 250ML + URINARY KALLIDINOGENASE 1 VIAL] IVGTT QD
     Route: 065
     Dates: start: 20220114
  17. URINARY KALLIDINOGENASE [Concomitant]
     Indication: Gastric disorder
     Dosage: [NS 250ML + URINARY KALLIDINOGENASE 1 VIAL] IVGTT QD
     Route: 065
     Dates: start: 20220114
  18. URINARY KALLIDINOGENASE [Concomitant]
     Indication: Abdominal discomfort
     Dosage: [NS 250ML + URINARY KALLIDINOGENASE 1 VIAL] IVGTT QD
     Route: 065
     Dates: start: 20220114
  19. INSULIN NOS [Concomitant]
     Active Substance: INSULIN NOS
     Indication: Blood glucose abnormal
     Route: 065
  20. PROBUCOL [Concomitant]
     Active Substance: PROBUCOL
     Indication: Lipid metabolism disorder
     Route: 065
  21. PROBUCOL [Concomitant]
     Active Substance: PROBUCOL
     Indication: Brachytherapy to skin
     Route: 065
  22. BUTYLPHTHALIDE [Concomitant]
     Active Substance: BUTYLPHTHALIDE
     Indication: Apoptosis
     Route: 065

REACTIONS (2)
  - Cerebral infarction [Recovering/Resolving]
  - Condition aggravated [Unknown]

NARRATIVE: CASE EVENT DATE: 20220113
